FAERS Safety Report 10163150 (Version 1)
Quarter: 2014Q2

REPORT INFORMATION
  Report Type: Spontaneous
  Country: CA (occurrence: CA)
  Receive Date: 20140509
  Receipt Date: 20140509
  Transmission Date: 20141212
  Serious: Yes (Life-Threatening)
  Sender: FDA-Public Use
  Company Number: CA-GLAXOSMITHKLINE-A1072492A

PATIENT
  Age: 36 Year
  Sex: Female

DRUGS (25)
  1. TIMENTIN [Suspect]
     Indication: PRODUCT USED FOR UNKNOWN INDICATION
     Dosage: 2G FOUR TIMES PER DAY
     Route: 042
  2. CALCIUM CARBONATE [Concomitant]
  3. CENTRUM FORTE [Concomitant]
  4. COLACE [Concomitant]
  5. FERROUS SULPHATE [Concomitant]
  6. GRAVOL [Concomitant]
  7. HEPARIN SODIUM [Concomitant]
  8. HYDROMORPH CONTIN [Concomitant]
  9. IPRATROPIUM [Concomitant]
  10. LACTULOSE [Concomitant]
  11. LORAZEPAM [Concomitant]
  12. MAGNESIUM GLUCONATE [Concomitant]
  13. MYFORTIC [Concomitant]
  14. NEXIUM [Concomitant]
  15. NORVASC [Concomitant]
  16. NYSTATIN [Concomitant]
  17. PANCRELIPASE [Concomitant]
  18. POLYETHYLENE GLYCOL [Concomitant]
  19. PREDNISONE [Concomitant]
  20. PROGRAF [Concomitant]
  21. SEPTRA [Concomitant]
  22. TYLENOL [Concomitant]
  23. URSODIOL [Concomitant]
  24. VENTOLIN [Concomitant]
  25. VITAMIN D [Concomitant]

REACTIONS (2)
  - Angioedema [Unknown]
  - Dyspnoea [Unknown]
